FAERS Safety Report 5580401-9 (Version None)
Quarter: 2008Q1

REPORT INFORMATION
  Report Type: 
  Country: None (occurrence: None)
  Receive Date: 20080103
  Receipt Date: 20071228
  Transmission Date: 20080703
  Serious: Yes (Life-Threatening, Hospitalization, Disabling)
  Sender: FDA-Public Use
  Company Number: US-MERCK-0710USA05857

PATIENT
  Age: 51 Year
  Sex: Male
  Weight: 271 kg

DRUGS (13)
  1. INVANZ [Suspect]
     Indication: GROIN INFECTION
     Route: 042
     Dates: start: 20071006, end: 20071007
  2. VITAMINS (UNSPECIFIED) [Concomitant]
     Route: 065
  3. PAROXETINE [Concomitant]
     Route: 065
  4. COZAAR [Concomitant]
     Route: 065
  5. KLOR-CON [Concomitant]
     Route: 065
  6. TOPROL-XL [Concomitant]
     Route: 065
  7. HYDROCHLOROTHIAZIDE [Concomitant]
     Route: 065
  8. ALBUTEROL [Concomitant]
     Route: 065
  9. GLUCOSAMINE [Concomitant]
     Route: 065
  10. DILTIAZEM HYDROCHLORIDE [Concomitant]
     Route: 065
  11. PRIMAXIN [Suspect]
     Route: 042
  12. ASCORBIC ACID [Concomitant]
     Route: 065
  13. CYANOCOBALAMIN [Concomitant]
     Route: 065

REACTIONS (3)
  - DRUG INEFFECTIVE [None]
  - RESPIRATORY FAILURE [None]
  - SEPSIS [None]
